FAERS Safety Report 8297527 (Version 2)
Quarter: 2014Q2

REPORT INFORMATION
  Report Type: Spontaneous
  Country: DE (occurrence: DE)
  Receive Date: 20111218
  Receipt Date: 20140609
  Transmission Date: 20141212
  Serious: Yes (Death, Life-Threatening, Hospitalization, Other)
  Sender: FDA-Public Use
  Company Number: DE-ELI_LILLY_AND_COMPANY-DE201112001342

PATIENT
  Age: 67 Year
  Sex: Female

DRUGS (6)
  1. ZYPREXA [Suspect]
     Indication: BIPOLAR DISORDER
     Dosage: 15 MG, QD
     Route: 048
     Dates: start: 20110821, end: 20111025
  2. ORFIRIL [Suspect]
     Indication: PRODUCT USED FOR UNKNOWN INDICATION
     Dosage: 2500 MG, QD
     Route: 048
     Dates: start: 20111025
  3. TOREM [Suspect]
     Indication: PRODUCT USED FOR UNKNOWN INDICATION
     Dosage: 10 MG, QD
     Route: 048
     Dates: start: 20111025
  4. THYROXIN [Concomitant]
     Dosage: 100 UG, QD
     Route: 048
     Dates: start: 20111025
  5. PANTOZOL [Concomitant]
     Dosage: 40 MG, QD
     Route: 048
     Dates: start: 20111025
  6. ESPUMISAN [Concomitant]
     Dosage: 253.98 MG, QD
     Route: 048
     Dates: start: 20111025

REACTIONS (2)
  - Pulmonary embolism [Fatal]
  - Right ventricular failure [Fatal]
